FAERS Safety Report 11219145 (Version 3)
Quarter: 2015Q3

REPORT INFORMATION
  Report Type: Report from Study
  Country: DE (occurrence: DE)
  Receive Date: 20150625
  Receipt Date: 20150810
  Transmission Date: 20151125
  Serious: Yes (Other)
  Sender: FDA-Public Use
  Company Number: PHHY2014DE111350

PATIENT
  Age: 58 Year
  Sex: Female
  Weight: 67 kg

DRUGS (13)
  1. ZYKADIA [Suspect]
     Active Substance: CERITINIB
     Dosage: 1 DF, QD
     Route: 048
  2. ZYKADIA [Suspect]
     Active Substance: CERITINIB
     Dosage: 2 DF, QD
     Route: 048
  3. ZYKADIA [Suspect]
     Active Substance: CERITINIB
     Dosage: 2 DF, QD
     Route: 048
     Dates: start: 20141204
  4. ZYKADIA [Suspect]
     Active Substance: CERITINIB
     Dosage: 3 DF, QD
     Route: 048
     Dates: start: 20141112, end: 20141115
  5. PANTOPRAZOLE SODIUM. [Concomitant]
     Active Substance: PANTOPRAZOLE SODIUM
     Indication: GASTRIC DISORDER
     Dosage: 40 MG, QD (1-0-0)
     Route: 065
     Dates: start: 2013
  6. ZYKADIA [Suspect]
     Active Substance: CERITINIB
     Dosage: 450 MG, QD (2-3 CAPSULES)
     Route: 048
     Dates: start: 20140809, end: 20140814
  7. ZYKADIA [Suspect]
     Active Substance: CERITINIB
     Dosage: 3 DF, QD
     Route: 048
     Dates: start: 20150401
  8. ZYKADIA [Suspect]
     Active Substance: CERITINIB
     Dosage: 1 DF, QD
     Route: 048
     Dates: end: 20150630
  9. ZYKADIA [Suspect]
     Active Substance: CERITINIB
     Indication: NON-SMALL CELL LUNG CANCER METASTATIC
     Dosage: 750 MG INITIALLY AT MORNING, QD
     Route: 048
     Dates: start: 20140703, end: 20140730
  10. ZYKADIA [Suspect]
     Active Substance: CERITINIB
     Dosage: 3 DF, QD
     Route: 048
  11. ZYKADIA [Suspect]
     Active Substance: CERITINIB
     Dosage: 300 MG, QD
     Route: 048
     Dates: start: 20140922
  12. ZYKADIA [Suspect]
     Active Substance: CERITINIB
     Dosage: 4 DF, QD
     Route: 048
  13. ZYKADIA [Suspect]
     Active Substance: CERITINIB
     Dosage: 1 DF, QD
     Route: 048
     Dates: start: 20141121

REACTIONS (21)
  - Bronchitis [Unknown]
  - Vomiting [Unknown]
  - Pleural effusion [Unknown]
  - Metastases to central nervous system [Unknown]
  - Sleep disorder [Recovering/Resolving]
  - Nausea [Recovering/Resolving]
  - Fatigue [Unknown]
  - Computerised tomogram thorax abnormal [Unknown]
  - Malignant neoplasm progression [Unknown]
  - Asthenia [Unknown]
  - Vomiting [Recovered/Resolved]
  - Pericardial effusion [Unknown]
  - Myalgia [Recovering/Resolving]
  - Aspartate aminotransferase increased [Unknown]
  - Abdominal pain upper [Unknown]
  - Gastrooesophageal reflux disease [Unknown]
  - Non-small cell lung cancer [Unknown]
  - Diarrhoea [Not Recovered/Not Resolved]
  - Muscle spasms [Recovering/Resolving]
  - Actinic keratosis [Unknown]
  - Alveolitis [Unknown]

NARRATIVE: CASE EVENT DATE: 2014
